FAERS Safety Report 4482002-2 (Version None)
Quarter: 2004Q4

REPORT INFORMATION
  Report Type: 
  Country: None (occurrence: None)
  Receive Date: 20041020
  Receipt Date: 20040225
  Transmission Date: 20050328
  Serious: Yes (Death)
  Sender: FDA-Public Use
  Company Number: EWC040238190

PATIENT
  Age: 60 Year
  Sex: Female
  Weight: 74 kg

DRUGS (5)
  1. OLANZAPINE [Suspect]
     Indication: SCHIZOPHRENIA
     Dosage: 5 MG/1 DAY
     Dates: start: 20021212
  2. ARTANE [Concomitant]
  3. DILTIAZEM HYDROCHLORIDE [Concomitant]
  4. ENALAPRIL MALEATE [Concomitant]
  5. DIAMICRON (GLICLAZIDE) [Concomitant]

REACTIONS (4)
  - CARDIO-RESPIRATORY ARREST [None]
  - CARDIOPULMONARY FAILURE [None]
  - COMA [None]
  - HYPOTENSION [None]
